FAERS Safety Report 8327625-5 (Version None)
Quarter: 2012Q2

REPORT INFORMATION
  Report Type: 
  Country: None (occurrence: None)
  Receive Date: 20120502
  Receipt Date: 20120423
  Transmission Date: 20120825
  Serious: Yes (Other)
  Sender: FDA-Public Use
  Company Number: US-BAYER-2011-107624

PATIENT
  Age: 25 Year
  Sex: Female
  Weight: 53.515 kg

DRUGS (5)
  1. ZYRTEC [Concomitant]
  2. NUVARING [Concomitant]
  3. CAPADEX [Concomitant]
  4. DROSPIRENONE AND ETHINYL ESTRADIOL [Suspect]
     Indication: CONTRACEPTION
     Dosage: UNK
     Route: 048
     Dates: start: 20080701, end: 20090401
  5. IRON [Concomitant]

REACTIONS (4)
  - GALLBLADDER DISORDER [None]
  - INJURY [None]
  - PAIN [None]
  - CHOLECYSTITIS ACUTE [None]
